FAERS Safety Report 7332044-4 (Version None)
Quarter: 2011Q1

REPORT INFORMATION
  Report Type: 
  Country: None (occurrence: None)
  Receive Date: 20110304
  Receipt Date: 20110224
  Transmission Date: 20110831
  Serious: Yes (Death, Hospitalization)
  Sender: FDA-Public Use
  Company Number: CL-GENZYME-CLOF-1001462

PATIENT
  Age: 29 Year
  Sex: Male

DRUGS (2)
  1. CLOLAR [Suspect]
     Indication: ACUTE MYELOID LEUKAEMIA
     Dosage: 40 MG/M2, QDX5
     Route: 065
     Dates: start: 20110119, end: 20110123
  2. CYTARABINE [Suspect]
     Indication: ACUTE MYELOID LEUKAEMIA
     Dosage: UNK
     Route: 065
     Dates: start: 20110119, end: 20110123

REACTIONS (2)
  - CANDIDIASIS [None]
  - DEATH [None]
